FAERS Safety Report 14670878 (Version 8)
Quarter: 2018Q2

REPORT INFORMATION
  Report Type: Report from Study
  Country: ES (occurrence: ES)
  Receive Date: 20180322
  Receipt Date: 20180510
  Transmission Date: 20180711
  Serious: Yes (Hospitalization, Other)
  Sender: FDA-Public Use
  Company Number: ES-BRISTOL-MYERS SQUIBB COMPANY-BMS-2018-026761

PATIENT
  Age: 20 Year
  Sex: Male
  Weight: 128 kg

DRUGS (8)
  1. SUNITINIB MALATE. [Suspect]
     Active Substance: SUNITINIB MALATE
     Indication: SOFT TISSUE SARCOMA
     Dosage: 25 MG, QD
     Route: 048
     Dates: start: 20171218, end: 20180312
  2. FUROSEMIDE. [Suspect]
     Active Substance: FUROSEMIDE
     Indication: OEDEMA PERIPHERAL
     Dosage: UNK
     Route: 048
     Dates: start: 20180216, end: 20180312
  3. DEXKETOPROFEN [Concomitant]
     Active Substance: DEXKETOPROFEN
     Indication: FIBROSARCOMA
     Dosage: UNK
     Route: 065
     Dates: start: 20170926, end: 20180312
  4. TRAMADOL. [Concomitant]
     Active Substance: TRAMADOL
     Indication: FIBROSARCOMA
     Dosage: UNK
     Route: 065
     Dates: start: 20170926, end: 20180312
  5. PREGABALIN. [Concomitant]
     Active Substance: PREGABALIN
     Indication: FIBROSARCOMA
     Dosage: UNK
     Route: 065
     Dates: start: 20170926, end: 20180312
  6. NIVOLUMAB [Suspect]
     Active Substance: NIVOLUMAB
     Indication: SOFT TISSUE SARCOMA
     Dosage: 3 MG/KG, Q2WK
     Route: 042
     Dates: start: 20171228, end: 20180228
  7. ENALAPRIL,HYDROCHLOROTHIAZIDE [Suspect]
     Active Substance: ENALAPRIL MALEATE\HYDROCHLOROTHIAZIDE
     Indication: HYPERTENSION
     Dosage: UNK
     Route: 048
     Dates: start: 20170529, end: 20180312
  8. TRAMADOL. [Concomitant]
     Active Substance: TRAMADOL
     Indication: PRODUCT USED FOR UNKNOWN INDICATION
     Dosage: UNK
     Route: 065

REACTIONS (3)
  - Acute kidney injury [Recovered/Resolved]
  - Psoriatic arthropathy [Unknown]
  - Nephritis [Recovered/Resolved]

NARRATIVE: CASE EVENT DATE: 20180312
